FAERS Safety Report 8462605-0 (Version None)
Quarter: 2012Q2

REPORT INFORMATION
  Report Type: 
  Country: None (occurrence: None)
  Receive Date: 20120619
  Receipt Date: 20120619
  Transmission Date: 20120825
  Serious: Yes (Life-Threatening, Hospitalization, Disabling, Other)
  Sender: FDA-Public Use
  Company Number: None

PATIENT
  Sex: Female
  Weight: 60.782 kg

DRUGS (1)
  1. SAVELLA [Suspect]
     Indication: FIBROMYALGIA
     Dosage: 50 MG TWICE DAILY
     Dates: start: 20111010, end: 20120415

REACTIONS (13)
  - IRRITABILITY [None]
  - AGGRESSION [None]
  - HOSTILITY [None]
  - CHEST DISCOMFORT [None]
  - HEART RATE IRREGULAR [None]
  - PANIC ATTACK [None]
  - HYPERTENSION [None]
  - AGITATION [None]
  - RESTLESSNESS [None]
  - HEART RATE INCREASED [None]
  - ANXIETY [None]
  - DEPRESSION [None]
  - MEMORY IMPAIRMENT [None]
